FAERS Safety Report 4615268-6 (Version None)
Quarter: 2005Q1

REPORT INFORMATION
  Report Type: 
  Country: None (occurrence: None)
  Receive Date: 20050317
  Receipt Date: 20050309
  Transmission Date: 20050727
  Serious: Yes (Hospitalization)
  Sender: FDA-Public Use
  Company Number: GBWYE495311MAR05

PATIENT
  Age: 33 Year
  Sex: Male

DRUGS (2)
  1. TAZOCIN (PIPERACILLIN/TAZOBACTAM, INJECTION) [Suspect]
     Indication: INFECTION
     Dosage: 6.75 G 3X PER 1 DAY INTRAVENOUS
     Route: 042
     Dates: start: 20050204, end: 20050218
  2. GENTAMICIN [Suspect]
     Indication: INFECTION
     Dosage: 160 MG 2X PER 1 DAY INTRAVENOUS
     Route: 042
     Dates: start: 20050204, end: 20050218

REACTIONS (5)
  - LYMPHOCYTE COUNT DECREASED [None]
  - PRURITUS GENERALISED [None]
  - PYREXIA [None]
  - RASH MACULO-PAPULAR [None]
  - WHITE BLOOD CELL COUNT DECREASED [None]
